FAERS Safety Report 7046277-8 (Version None)
Quarter: 2010Q4

REPORT INFORMATION
  Report Type: 
  Country: None (occurrence: None)
  Receive Date: 20101014
  Receipt Date: 20101007
  Transmission Date: 20110411
  Serious: Yes (Death)
  Sender: FDA-Public Use
  Company Number: A0886542A

PATIENT
  Age: 26 Year
  Sex: Female

DRUGS (1)
  1. LAMICTAL [Suspect]
     Dosage: 68Z PER DAY
     Route: 048

REACTIONS (3)
  - CONVULSION [None]
  - DRUG TOXICITY [None]
  - OVERDOSE [None]
